FAERS Safety Report 7613044-3 (Version None)
Quarter: 2011Q3

REPORT INFORMATION
  Report Type: 
  Country: None (occurrence: None)
  Receive Date: 20110708
  Receipt Date: 20110622
  Transmission Date: 20111222
  Serious: No
  Sender: FDA-Public Use
  Company Number: THQ2011A03302

PATIENT

DRUGS (2)
  1. UNKNOWN ANTI-DIABETIC AGENTS (DRUG USED IN DIABETES) [Concomitant]
  2. ACTOS [Suspect]
     Indication: BLOOD GLUCOSE INCREASED
     Dosage: PER ORAL
     Route: 048

REACTIONS (2)
  - BLOOD GLUCOSE INCREASED [None]
  - BLADDER CANCER [None]
